FAERS Safety Report 9137662 (Version 7)
Quarter: 2013Q4

REPORT INFORMATION
  Report Type: Report from Study
  Country: US (occurrence: US)
  Receive Date: 20130304
  Receipt Date: 20131120
  Transmission Date: 20140711
  Serious: Yes (Hospitalization)
  Sender: FDA-Public Use
  Company Number: US-ACTELION-A-US2013-79731

PATIENT
  Age: 57 Year
  Sex: Male

DRUGS (5)
  1. VELETRI [Suspect]
     Indication: PULMONARY ARTERIAL HYPERTENSION
     Dosage: 17 NG/KG, PER MIN
     Route: 042
     Dates: start: 20130122
  2. VELETRI [Suspect]
     Dosage: 9 NG/KG, PER MIN
     Route: 042
     Dates: start: 20130125
  3. ADCIRCA [Concomitant]
  4. LETAIRIS [Concomitant]
  5. TYVASO [Concomitant]

REACTIONS (6)
  - Pneumonia [Not Recovered/Not Resolved]
  - Cough [Not Recovered/Not Resolved]
  - Fluid overload [Recovering/Resolving]
  - Pleural effusion [Unknown]
  - Dyspnoea [Unknown]
  - Aspiration pleural cavity [Unknown]
